FAERS Safety Report 25975878 (Version 1)
Quarter: 2025Q4

REPORT INFORMATION
  Report Type: Spontaneous
  Country: EU (occurrence: EU)
  Receive Date: 20251029
  Receipt Date: 20251029
  Transmission Date: 20260118
  Serious: Yes (Death, Other)
  Sender: AMGEN
  Company Number: EU-AMGEN-ESPSP2025209916

PATIENT

DRUGS (2)
  1. BEVACIZUMAB [Suspect]
     Active Substance: BEVACIZUMAB
     Indication: Ovarian cancer recurrent
     Dosage: UNK
     Route: 065
  2. NIRAPARIB [Concomitant]
     Active Substance: NIRAPARIB
     Indication: Ovarian cancer recurrent

REACTIONS (33)
  - Death [Fatal]
  - Ovarian cancer recurrent [Unknown]
  - Acute myeloid leukaemia [Unknown]
  - Myelodysplastic syndrome [Unknown]
  - Thrombocytopenia [Unknown]
  - Pruritus [Unknown]
  - Palpitations [Unknown]
  - Toxicity to various agents [Unknown]
  - Hypercholesterolaemia [Unknown]
  - Depression [Unknown]
  - Therapy partial responder [Unknown]
  - Insomnia [Unknown]
  - Anxiety [Unknown]
  - Anaemia [Unknown]
  - Pyrexia [Unknown]
  - Fatigue [Unknown]
  - Platelet count decreased [Unknown]
  - Hypertension [Unknown]
  - Neutrophil count decreased [Unknown]
  - Blood creatinine increased [Unknown]
  - Vomiting [Unknown]
  - Constipation [Unknown]
  - Headache [Unknown]
  - White blood cell count decreased [Unknown]
  - Hypomagnesaemia [Unknown]
  - Decreased appetite [Unknown]
  - Cough [Unknown]
  - Nausea [Unknown]
  - Mucosal inflammation [Unknown]
  - Diarrhoea [Unknown]
  - Dyspnoea [Unknown]
  - Dysgeusia [Unknown]
  - Abdominal pain [Unknown]
